FAERS Safety Report 7374022-5 (Version None)
Quarter: 2011Q1

REPORT INFORMATION
  Report Type: 
  Country: None (occurrence: None)
  Receive Date: 20110325
  Receipt Date: 20110314
  Transmission Date: 20110831
  Serious: Yes (Other)
  Sender: FDA-Public Use
  Company Number: US-PFIZER INC-2009246015

PATIENT
  Sex: Female
  Weight: 103 kg

DRUGS (7)
  1. PREMARIN [Suspect]
     Indication: MENOPAUSAL SYMPTOMS
  2. PREMARIN [Suspect]
     Indication: HORMONE REPLACEMENT THERAPY
     Dosage: UNK
     Dates: start: 19900101, end: 20010501
  3. PREMPRO [Suspect]
     Indication: MENOPAUSAL SYMPTOMS
  4. PRILOSEC [Concomitant]
     Indication: GASTROOESOPHAGEAL REFLUX DISEASE
     Dosage: UNK
     Dates: start: 19900101
  5. PROVERA [Suspect]
     Indication: HORMONE REPLACEMENT THERAPY
     Dosage: UNK
     Route: 048
     Dates: start: 19900101, end: 20010501
  6. PROVERA [Suspect]
     Indication: MENOPAUSAL SYMPTOMS
  7. PREMPRO [Suspect]
     Indication: HORMONE REPLACEMENT THERAPY
     Dosage: UNK

REACTIONS (1)
  - BREAST CANCER [None]
